FAERS Safety Report 23089996 (Version 1)
Quarter: 2023Q4

REPORT INFORMATION
  Report Type: Spontaneous
  Country: US (occurrence: US)
  Receive Date: 20231020
  Receipt Date: 20231020
  Transmission Date: 20240109
  Serious: Yes (Other)
  Sender: FDA-Public Use
  Company Number: US-PERRIGO-23US012055

PATIENT

DRUGS (1)
  1. OXYCODONE HYDROCHLORIDE\OXYCODONE TEREPHTHALATE [Suspect]
     Active Substance: OXYCODONE HYDROCHLORIDE\OXYCODONE TEREPHTHALATE
     Indication: Product used for unknown indication
     Dosage: UNKNOWN, UNKNOWN
     Route: 045
     Dates: start: 202310

REACTIONS (5)
  - Loss of consciousness [Unknown]
  - Lymphangitis [Unknown]
  - Dizziness [Unknown]
  - Nausea [Unknown]
  - Petechiae [Unknown]

NARRATIVE: CASE EVENT DATE: 20231001
